FAERS Safety Report 16935594 (Version 2)
Quarter: 2019Q4

REPORT INFORMATION
  Report Type: Spontaneous
  Country: US (occurrence: US)
  Receive Date: 20191018
  Receipt Date: 20191126
  Transmission Date: 20200122
  Serious: No
  Sender: FDA-Public Use
  Company Number: US-SA-2019SA288517

PATIENT
  Age: 65 Year
  Sex: Female
  Weight: 117 kg

DRUGS (1)
  1. TOUJEO [Suspect]
     Active Substance: INSULIN GLARGINE
     Indication: TYPE 2 DIABETES MELLITUS
     Dosage: 44 U, QD
     Route: 065
     Dates: start: 20140615

REACTIONS (2)
  - Device operational issue [Unknown]
  - Blood glucose increased [Unknown]
